FAERS Safety Report 11882100 (Version 2)
Quarter: 2016Q1

REPORT INFORMATION
  Report Type: Spontaneous
  Country: GB (occurrence: GB)
  Receive Date: 20151231
  Receipt Date: 20160104
  Transmission Date: 20160526
  Serious: Yes (Hospitalization)
  Sender: FDA-Public Use
  Company Number: GB-JNJFOC-20151218000

PATIENT
  Age: 23 Year
  Sex: Female
  Weight: 79.4 kg

DRUGS (3)
  1. HERBAL NOS [Suspect]
     Active Substance: HERBALS
     Indication: PRODUCT USED FOR UNKNOWN INDICATION
     Dosage: APPROXIMATELY 30 DOSES (UNIT UNSPECIFIED)
     Route: 065
     Dates: start: 20151207
  2. PARACETAMOL [Suspect]
     Active Substance: ACETAMINOPHEN
     Indication: HEADACHE
     Dosage: APPROXIMATELY 30 DOSES (UNIT UNSPECIFIED) IN EVENING
     Route: 065
     Dates: start: 20151207
  3. PARACETAMOL [Suspect]
     Active Substance: ACETAMINOPHEN
     Route: 065

REACTIONS (4)
  - Alanine aminotransferase increased [None]
  - Liver function test abnormal [Recovering/Resolving]
  - Overdose [Recovering/Resolving]
  - Gamma-glutamyltransferase increased [None]

NARRATIVE: CASE EVENT DATE: 201512
